FAERS Safety Report 7130214-1 (Version None)
Quarter: 2010Q4

REPORT INFORMATION
  Report Type: 
  Country: None (occurrence: None)
  Receive Date: 20101201
  Receipt Date: 20101119
  Transmission Date: 20110411
  Serious: Yes (Hospitalization)
  Sender: FDA-Public Use
  Company Number: US-SOLVAY-00210005817

PATIENT
  Age: 35 Month
  Sex: Male
  Weight: 15 kg

DRUGS (6)
  1. CREON [Suspect]
     Indication: CYSTIC FIBROSIS
     Dosage: CREON; DAILY DOSE:  UNKNOWN
     Route: 065
     Dates: start: 20051001
  2. CREON [Suspect]
     Dosage: CREON D.R,DAILY DOSE:15DOSAGE FORM,UNIT DOSE:12000LIPASE UNITS,3 CAPSULES WITH MEALS 3 TIMES/DAY, 2C
     Route: 048
  3. VITAMAX [Concomitant]
     Indication: CYSTIC FIBROSIS
     Dosage: DAILY DOSE: 2 MILLILITRE(S), FREQUENCY: DAILY
     Route: 065
  4. PULMOZYME [Concomitant]
     Indication: CYSTIC FIBROSIS
     Dosage: DAILY DOSE: 1 VIAL
     Route: 065
  5. HYPERTONIC SALINE [Concomitant]
     Indication: CYSTIC FIBROSIS
     Dosage: DAILY DOSE: 1 VIAL
     Route: 065
  6. ALBUTEROL SULFATE [Concomitant]
     Indication: CYSTIC FIBROSIS
     Dosage: DAILY DOSE: 1 VIAL
     Route: 065

REACTIONS (6)
  - GASTROINTESTINAL TUBE INSERTION [None]
  - OESOPHAGEAL OPERATION [None]
  - OESOPHAGEAL PH [None]
  - PNEUMONIA BACTERIAL [None]
  - RESPIRATORY TRACT INFECTION [None]
  - WEIGHT FLUCTUATION [None]
